FAERS Safety Report 9996348 (Version 2)
Quarter: 2014Q1

REPORT INFORMATION
  Report Type: Spontaneous
  Country: US (occurrence: US)
  Receive Date: 20140311
  Receipt Date: 20140325
  Transmission Date: 20141002
  Serious: Yes (Hospitalization)
  Sender: FDA-Public Use
  Company Number: US-GLAXOSMITHKLINE-A1063550A

PATIENT
  Age: 52 Year
  Sex: Female

DRUGS (2)
  1. VALTREX [Suspect]
     Indication: GENITAL HERPES
     Dosage: 1G PER DAY
     Route: 048
     Dates: start: 2000
  2. COUMADIN [Concomitant]

REACTIONS (12)
  - Transient ischaemic attack [Unknown]
  - Meningitis [Unknown]
  - Herpes zoster [Unknown]
  - Headache [Unknown]
  - Gastric disorder [Unknown]
  - Eye pain [Unknown]
  - Dysarthria [Unknown]
  - Hypoaesthesia [Unknown]
  - Trigeminal neuralgia [Unknown]
  - Drug ineffective [Unknown]
  - Drug administration error [Unknown]
  - Abdominal discomfort [Unknown]
